FAERS Safety Report 21971363 (Version 1)
Quarter: 2023Q1

REPORT INFORMATION
  Report Type: Spontaneous
  Country: GB (occurrence: GB)
  Receive Date: 20230209
  Receipt Date: 20230209
  Transmission Date: 20230417
  Serious: No
  Sender: FDA-Public Use
  Company Number: None

PATIENT
  Age: 53 Year
  Sex: Female
  Weight: 62 kg

DRUGS (11)
  1. GABAPENTIN [Suspect]
     Active Substance: GABAPENTIN
     Indication: Product used for unknown indication
     Dosage: 300 MILLIGRAM, (2 AT NIGHT AND 1 IN THE MORNING) CAPSULE
     Route: 065
     Dates: start: 20221003
  2. ESTRADIOL [Concomitant]
     Active Substance: ESTRADIOL
     Indication: Product used for unknown indication
     Dosage: UNK (USE AS DIRECTED)
     Route: 065
     Dates: start: 20210920
  3. FERROUS FUMARATE [Concomitant]
     Active Substance: FERROUS FUMARATE
     Indication: Product used for unknown indication
     Dosage: UNK, QD (2X5ML SPOON PER DAY)
     Route: 065
     Dates: start: 20220825, end: 20220909
  4. FOLIC ACID [Concomitant]
     Active Substance: FOLIC ACID
     Indication: Product used for unknown indication
     Dosage: UNK, (1 TABLET TWICE PER WEEK THEN STOP)
     Route: 065
     Dates: start: 20220825, end: 20220922
  5. GELTEARS [Concomitant]
     Indication: Product used for unknown indication
     Dosage: UNK, QID (FOUR TIMES A DAY)
     Route: 065
     Dates: start: 20210920
  6. LANSOPRAZOLE [Concomitant]
     Active Substance: LANSOPRAZOLE
     Indication: Product used for unknown indication
     Dosage: UNK, OD
     Route: 065
     Dates: start: 20210920
  7. MIRTAZAPINE [Concomitant]
     Active Substance: MIRTAZAPINE
     Indication: Product used for unknown indication
     Dosage: UNK, HS (ONE TO BE TAKEN AT NIGHT)
     Route: 065
     Dates: start: 20210920
  8. OTOMIZE [Concomitant]
     Indication: Product used for unknown indication
     Dosage: UNK (SPRAY ONE PUFF INTO THE AFFECTED EAR THREE TIME)
     Route: 065
     Dates: start: 20220819, end: 20220826
  9. PREDNISOLONE [Concomitant]
     Active Substance: PREDNISOLONE
     Indication: Product used for unknown indication
     Dosage: UNK, QD (5 TABLETS PER DAY FOR 3 DAYS)
     Route: 065
     Dates: start: 20220920, end: 20220927
  10. PREDNISOLONE [Concomitant]
     Active Substance: PREDNISOLONE
     Dosage: UNK, QD (4 TABLETS PER DAY FOR 3 DAYS)
     Route: 065
     Dates: start: 20220920, end: 20220927
  11. PROPRANOLOL [Concomitant]
     Active Substance: PROPRANOLOL HYDROCHLORIDE
     Indication: Product used for unknown indication
     Dosage: UNK, HS (ONE AT NIGHT)
     Route: 065
     Dates: start: 20210920

REACTIONS (2)
  - Nausea [Recovering/Resolving]
  - Vomiting [Recovering/Resolving]

NARRATIVE: CASE EVENT DATE: 20221108
